FAERS Safety Report 9836931 (Version 3)
Quarter: 2014Q1

REPORT INFORMATION
  Report Type: Spontaneous
  Country: US (occurrence: US)
  Receive Date: 20140123
  Receipt Date: 20140213
  Transmission Date: 20141002
  Serious: No
  Sender: FDA-Public Use
  Company Number: US-PFIZER INC-2014017261

PATIENT
  Sex: Male

DRUGS (1)
  1. COLESTIPOL HCL [Suspect]
     Dosage: 1 G, 2X/DAY
     Route: 048

REACTIONS (3)
  - Gastric disorder [Unknown]
  - Drug ineffective for unapproved indication [Unknown]
  - Diarrhoea [Unknown]
